FAERS Safety Report 14512176 (Version 1)
Quarter: 2018Q1

REPORT INFORMATION
  Report Type: Spontaneous
  Country: US (occurrence: US)
  Receive Date: 20180209
  Receipt Date: 20180209
  Transmission Date: 20180509
  Serious: Yes (Other)
  Sender: FDA-Public Use
  Company Number: US-DSJP-DSU-2017-103790AA

PATIENT
  Sex: Female
  Weight: 50.34 kg

DRUGS (11)
  1. EVOXAC [Suspect]
     Active Substance: CEVIMELINE HYDROCHLORIDE
     Dosage: 90 MG, QD
     Route: 048
     Dates: start: 2002, end: 2007
  2. TOPAMAX [Concomitant]
     Active Substance: TOPIRAMATE
     Indication: MIGRAINE
     Dosage: UNK
     Route: 048
  3. EVOXAC [Suspect]
     Active Substance: CEVIMELINE HYDROCHLORIDE
     Dosage: 120 MG, QD
     Route: 048
     Dates: start: 2012
  4. EVOXAC AG [Suspect]
     Active Substance: CEVIMELINE HYDROCHLORIDE
     Dosage: 120 MG, QD
     Route: 048
     Dates: start: 2007, end: 2007
  5. EVOXAC AG [Suspect]
     Active Substance: CEVIMELINE HYDROCHLORIDE
     Indication: SJOGREN^S SYNDROME
     Dosage: 90 MG, QD
     Route: 048
     Dates: start: 2002, end: 2002
  6. NATOLOL [Concomitant]
     Indication: MIGRAINE
     Dosage: UNK
     Route: 048
  7. LEVOTHYROXINE. [Concomitant]
     Active Substance: LEVOTHYROXINE
     Indication: HYPOTHYROIDISM
     Dosage: 125 ?G, UNK
     Route: 048
  8. EVOXAC [Suspect]
     Active Substance: CEVIMELINE HYDROCHLORIDE
     Dosage: 120 MG, QD
     Route: 048
     Dates: start: 2007, end: 2012
  9. MAGNESIUM [Concomitant]
     Active Substance: MAGNESIUM
     Indication: MIGRAINE
     Dosage: UNK
     Route: 048
  10. EVOXAC [Suspect]
     Active Substance: CEVIMELINE HYDROCHLORIDE
     Indication: SJOGREN^S SYNDROME
     Dosage: 90 MG, QD
     Route: 048
     Dates: start: 1997, end: 2002
  11. EVOXAC AG [Suspect]
     Active Substance: CEVIMELINE HYDROCHLORIDE
     Dosage: 120 MG, QD
     Route: 048
     Dates: start: 2012, end: 2012

REACTIONS (11)
  - Blood potassium decreased [Unknown]
  - Systemic lupus erythematosus [Unknown]
  - Depression [Unknown]
  - Restless legs syndrome [Unknown]
  - Incorrect dose administered [Not Recovered/Not Resolved]
  - Drug ineffective [Recovered/Resolved]
  - Haemorrhagic disorder [Unknown]
  - Dry mouth [Recovered/Resolved]
  - Bladder spasm [Unknown]
  - Lactose intolerance [Unknown]
  - Abdominal pain upper [Unknown]

NARRATIVE: CASE EVENT DATE: 1998
